FAERS Safety Report 4410713-3 (Version None)
Quarter: 2004Q3

REPORT INFORMATION
  Report Type: 
  Country: None (occurrence: None)
  Receive Date: 20040726
  Receipt Date: 20040714
  Transmission Date: 20050211
  Serious: Yes (Hospitalization)
  Sender: FDA-Public Use
  Company Number: 2004047984

PATIENT
  Age: 89 Year
  Sex: Female

DRUGS (2)
  1. SULPERAZON (CEFOPERAZONE, SULBACTAM) [Suspect]
     Indication: PNEUMONIA
     Dosage: 2 GRAM (1 D), INTRAVENOUS
     Route: 042
     Dates: start: 20040519, end: 20040521
  2. CEFOTIAM HYDROCHLORIDE [Concomitant]

REACTIONS (1)
  - TOXIC EPIDERMAL NECROLYSIS [None]
